FAERS Safety Report 6284774-3 (Version None)
Quarter: 2009Q3

REPORT INFORMATION
  Report Type: 
  Country: None (occurrence: None)
  Receive Date: 20090727
  Receipt Date: 20090723
  Transmission Date: 20100115
  Serious: Yes (Death)
  Sender: FDA-Public Use
  Company Number: PHHY2009BR30723

PATIENT
  Sex: Female

DRUGS (3)
  1. DIOVAN [Suspect]
     Indication: BLOOD PRESSURE
     Dosage: 1 TABLET/DAY
     Route: 048
     Dates: start: 20090101
  2. EUTHYROX [Concomitant]
     Indication: HYPOTHYROIDISM
     Dosage: 1 TABLET/DAY
     Route: 048
  3. PANTOPRAZOLE SODIUM [Concomitant]
     Dosage: 1 TABLET/DAY
     Route: 048

REACTIONS (4)
  - INFARCTION [None]
  - MULTI-ORGAN FAILURE [None]
  - RENAL DISORDER [None]
  - RESPIRATORY FAILURE [None]
